FAERS Safety Report 15578590 (Version 1)
Quarter: 2018Q4

REPORT INFORMATION
  Report Type: Spontaneous
  Country: US (occurrence: US)
  Receive Date: 20181029
  Receipt Date: 20181029
  Transmission Date: 20190205
  Serious: Yes (Hospitalization)
  Sender: FDA-Public Use
  Company Number: None

PATIENT
  Age: 71 Year
  Sex: Male

DRUGS (2)
  1. APIXABAN [Suspect]
     Active Substance: APIXABAN
     Route: 048
     Dates: start: 20180226, end: 20180502
  2. CLOPIDOGREL [Suspect]
     Active Substance: CLOPIDOGREL BISULFATE
     Route: 048
     Dates: start: 20140516

REACTIONS (22)
  - Oesophagitis haemorrhagic [None]
  - Chest pain [None]
  - Duodenitis [None]
  - Gastrointestinal disorder [None]
  - Diverticulum intestinal haemorrhagic [None]
  - Dyspnoea [None]
  - Fluid overload [None]
  - Gastrointestinal haemorrhage [None]
  - Faeces discoloured [None]
  - Mass [None]
  - Anaemia [None]
  - Haemorrhagic arteriovenous malformation [None]
  - Nausea [None]
  - Bradycardia [None]
  - Gastritis haemorrhagic [None]
  - Gastrointestinal polyp haemorrhage [None]
  - Gastric mucosa erythema [None]
  - Vomiting [None]
  - Inadequate haemodialysis [None]
  - Electrolyte imbalance [None]
  - Occult blood positive [None]
  - Ulcer haemorrhage [None]

NARRATIVE: CASE EVENT DATE: 20180502
